FAERS Safety Report 25626026 (Version 1)
Quarter: 2025Q3

REPORT INFORMATION
  Report Type: Spontaneous
  Country: US (occurrence: US)
  Receive Date: 20250731
  Receipt Date: 20250731
  Transmission Date: 20251021
  Serious: Yes (Other)
  Sender: NOVO NORDISK
  Company Number: US-NOVOPROD-1485876

PATIENT
  Age: 72 Year
  Sex: Female

DRUGS (3)
  1. WEGOVY [Suspect]
     Active Substance: SEMAGLUTIDE
     Indication: Weight control
     Dosage: 2.4 MG, QW
     Dates: start: 202310
  2. WEGOVY [Suspect]
     Active Substance: SEMAGLUTIDE
     Dates: start: 20250406
  3. WEGOVY [Suspect]
     Active Substance: SEMAGLUTIDE
     Dates: end: 202502

REACTIONS (2)
  - Groin pain [Unknown]
  - Product prescribing error [Not Recovered/Not Resolved]
